FAERS Safety Report 20929417 (Version 1)
Quarter: 2022Q2

REPORT INFORMATION
  Report Type: Spontaneous
  Country: GR (occurrence: GR)
  Receive Date: 20220608
  Receipt Date: 20220608
  Transmission Date: 20220720
  Serious: Yes (Disabling)
  Sender: FDA-Public Use
  Company Number: None

PATIENT
  Age: 4 Year
  Sex: Male
  Weight: 16 kg

DRUGS (1)
  1. SINGULAIR [Suspect]
     Active Substance: MONTELUKAST SODIUM
     Dosage: DAILY ADMINISTRATION OF THE DRUG
     Route: 048
     Dates: start: 20211203, end: 20211229

REACTIONS (11)
  - Decreased appetite [Recovered/Resolved]
  - Decreased interest [Recovered/Resolved]
  - Negative thoughts [Recovered/Resolved]
  - Mobility decreased [Recovered/Resolved]
  - Slow speech [Recovered/Resolved]
  - Muscle spasms [Recovered/Resolved]
  - Suicidal ideation [Recovered/Resolved]
  - Depressed mood [Recovered/Resolved]
  - Apathy [Recovered/Resolved]
  - Fatigue [Recovered/Resolved]
  - Weight decreased [Recovered/Resolved]

NARRATIVE: CASE EVENT DATE: 20211220
